FAERS Safety Report 4431916-8 (Version None)
Quarter: 2004Q3

REPORT INFORMATION
  Report Type: 
  Country: None (occurrence: None)
  Receive Date: 20040819
  Receipt Date: 20040805
  Transmission Date: 20050211
  Serious: Yes (Hospitalization)
  Sender: FDA-Public Use
  Company Number: SP-2004-001808

PATIENT
  Age: 88 Year
  Sex: Female

DRUGS (5)
  1. OLMETEC [Suspect]
     Indication: HYPERTENSION
     Dosage: 40 MG QD PO
     Route: 048
     Dates: start: 20040504, end: 20040616
  2. AMLODIPINE [Concomitant]
  3. BENDROFLUAZIDE [Concomitant]
  4. ATORVASTATIN [Concomitant]
  5. DOXAZOSIN [Concomitant]

REACTIONS (2)
  - HYPERKALAEMIA [None]
  - RENAL FAILURE CHRONIC [None]
